FAERS Safety Report 5721607-5 (Version None)
Quarter: 2008Q2

REPORT INFORMATION
  Report Type: 
  Country: None (occurrence: None)
  Receive Date: 20080428
  Receipt Date: 20080428
  Transmission Date: 20081010
  Serious: Yes (Disabling)
  Sender: FDA-Public Use
  Company Number: None

PATIENT
  Age: 25 Year
  Sex: Male
  Weight: 60.3284 kg

DRUGS (1)
  1. DAPSONE [Suspect]
     Indication: ARTHROPOD BITE
     Dosage: 100 MG 1X DAILY 7 DAYS PO
     Route: 048
     Dates: start: 20080422, end: 20080425

REACTIONS (9)
  - BLOOD DISORDER [None]
  - CHEST PAIN [None]
  - DIZZINESS [None]
  - DYSPNOEA [None]
  - HEART RATE INCREASED [None]
  - LIP DISCOLOURATION [None]
  - PALLOR [None]
  - PHARYNGOLARYNGEAL PAIN [None]
  - VISION BLURRED [None]
